FAERS Safety Report 5163596-0 (Version None)
Quarter: 2006Q4

REPORT INFORMATION
  Report Type: 
  Country: None (occurrence: None)
  Receive Date: 20061128
  Receipt Date: 20061128
  Transmission Date: 20070319
  Serious: Yes (Other)
  Sender: FDA-Public Use
  Company Number: None

PATIENT
  Age: 42 Year
  Sex: Male
  Weight: 81 kg

DRUGS (3)
  1. RISPERDAL [Suspect]
     Indication: SCHIZOAFFECTIVE DISORDER
     Dosage: 4MG  TID  PO
     Route: 048
     Dates: start: 20060816, end: 20060912
  2. LITHIUM CARBONATE [Concomitant]
  3. AMBIEN [Concomitant]

REACTIONS (3)
  - ELECTROCARDIOGRAM T WAVE INVERSION [None]
  - HYPERHIDROSIS [None]
  - TACHYCARDIA [None]
